FAERS Safety Report 16992328 (Version 1)
Quarter: 2019Q4

REPORT INFORMATION
  Report Type: Spontaneous
  Country: CA (occurrence: CA)
  Receive Date: 20191105
  Receipt Date: 20191105
  Transmission Date: 20200122
  Serious: Yes (Other)
  Sender: FDA-Public Use
  Company Number: CA-CELLTRION INC.-2019CA026021

PATIENT

DRUGS (6)
  1. METHYLPREDNISOLONE. [Concomitant]
     Active Substance: METHYLPREDNISOLONE
  2. INFLIXIMAB (UNKNOWN) [Suspect]
     Active Substance: INFLIXIMAB
     Dosage: 10 MG/KG/DOSE AT WEEK 0 AND WEEK 2, AND RECEIVED REPEAT INTRODUCTION AT WEEK 4
  3. ADALIMUMAB [Concomitant]
     Active Substance: ADALIMUMAB
  4. GOLIMUMAB [Concomitant]
     Active Substance: GOLIMUMAB
  5. INFLIXIMAB (UNKNOWN) [Suspect]
     Active Substance: INFLIXIMAB
     Dosage: SIXTH INFUSION
  6. INFLIXIMAB (UNKNOWN) [Suspect]
     Active Substance: INFLIXIMAB
     Indication: ANASTOMOTIC ULCER HAEMORRHAGE
     Dosage: 6.5 MG/KG/DOSE AT WEEK 0, 2 AND 6, FOLLOWED BY EVERY 8 WEEKS

REACTIONS (4)
  - Pyrexia [Unknown]
  - Product use in unapproved indication [Unknown]
  - Drug specific antibody [Unknown]
  - Rash [Unknown]
